FAERS Safety Report 7122651-6 (Version None)
Quarter: 2010Q4

REPORT INFORMATION
  Report Type: 
  Country: None (occurrence: None)
  Receive Date: 20101124
  Receipt Date: 20101116
  Transmission Date: 20110411
  Serious: Yes (Death)
  Sender: FDA-Public Use
  Company Number: FR-ALEXION PHARMACEUTICALS INC.-A201001428

PATIENT

DRUGS (2)
  1. SOLIRIS [Suspect]
     Indication: PAROXYSMAL NOCTURNAL HAEMOGLOBINURIA
     Route: 042
     Dates: end: 20100421
  2. SOLIRIS [Suspect]
     Dosage: 600 MG, QW
     Route: 042
     Dates: start: 20101012, end: 20101022

REACTIONS (1)
  - GENERAL PHYSICAL HEALTH DETERIORATION [None]
